FAERS Safety Report 17712538 (Version 1)
Quarter: 2020Q2

REPORT INFORMATION
  Report Type: Spontaneous
  Country: US (occurrence: US)
  Receive Date: 20200426
  Receipt Date: 20200426
  Transmission Date: 20200714
  Serious: Yes (Other)
  Sender: FDA-Public Use
  Company Number: None

PATIENT
  Age: 32 Year
  Sex: Female
  Weight: 77.11 kg

DRUGS (11)
  1. BREO ELLIPTA [Concomitant]
     Active Substance: FLUTICASONE FUROATE\VILANTEROL TRIFENATATE
  2. ALBUTEROL. [Concomitant]
     Active Substance: ALBUTEROL
  3. NAPROXEN. [Concomitant]
     Active Substance: NAPROXEN
  4. MIRENA [Suspect]
     Active Substance: LEVONORGESTREL
  5. DAILY VITAMIN [Concomitant]
     Active Substance: VITAMINS
  6. GLUCOSAMINE AND CONDROITIN [Concomitant]
  7. TYLENOL [Concomitant]
     Active Substance: ACETAMINOPHEN
  8. LEXAPROP [Concomitant]
  9. VITAMIN B COMPLEX [Concomitant]
     Active Substance: CYANOCOBALAMIN\DEXPANTHENOL\NIACINAMIDE\PYRIDOXINE HYDROCHLORIDE\RIBOFLAVIN 5^-PHOSPHATE SODIUM\THIAMINE HYDROCHLORIDE\VITAMIN B COMPLEX
  10. VITAMIN E COMPLEX [Concomitant]
  11. DICYCLOMENE [Concomitant]

REACTIONS (2)
  - Polymenorrhoea [None]
  - Muscle spasms [None]

NARRATIVE: CASE EVENT DATE: 20200426
